FAERS Safety Report 4407392-8 (Version None)
Quarter: 2004Q3

REPORT INFORMATION
  Report Type: 
  Country: None (occurrence: None)
  Receive Date: 20040723
  Receipt Date: 20040713
  Transmission Date: 20050211
  Serious: No
  Sender: FDA-Public Use
  Company Number: 2004PK01223

PATIENT
  Age: 45 Year
  Sex: Male
  Weight: 93 kg

DRUGS (3)
  1. CRESTOR [Suspect]
     Indication: HYPERCHOLESTEROLAEMIA
     Dosage: 10 MG DAILY PO
     Route: 048
     Dates: start: 20031211, end: 20040101
  2. SELOKEN [Concomitant]
  3. PARIET [Concomitant]

REACTIONS (2)
  - ALCOHOL INTOLERANCE [None]
  - ALCOHOL POISONING [None]
